FAERS Safety Report 8474896-0 (Version None)
Quarter: 2012Q2

REPORT INFORMATION
  Report Type: 
  Country: None (occurrence: None)
  Receive Date: 20120621
  Receipt Date: 20120613
  Transmission Date: 20120825
  Serious: Yes (Life-Threatening, Other)
  Sender: FDA-Public Use
  Company Number: GB-DEXPHARM-20120691

PATIENT
  Age: 56 Year
  Sex: Female

DRUGS (26)
  1. ACYCLOVIR [Concomitant]
  2. ENOXAPARIN [Concomitant]
  3. INSULIN HUMAN [Concomitant]
  4. SODIUM CHLORIDE [Concomitant]
  5. LORAZEPAM [Concomitant]
  6. METRONIDAZOLE [Concomitant]
  7. POTASSIUM CHLORIDE [Concomitant]
  8. PROPOFOL [Concomitant]
  9. RANITIDINE [Concomitant]
  10. THIAMINE [Concomitant]
  11. CLONIDINE [Concomitant]
  12. KAY CIEL DURA-TABS [Concomitant]
  13. PABRINEX [Concomitant]
  14. AMOXICILLIN [Concomitant]
  15. QUETIAPINE [Concomitant]
  16. CEFTRIAXONE [Concomitant]
  17. DIAZEPAM [Concomitant]
  18. LACTULOSE [Concomitant]
  19. LAMORIGINE [Concomitant]
  20. PHENYTOIN [Concomitant]
  21. YELLOW SOFT PARAFFIN ACTIVE SUBSTANCES: YELLOW SOFT PARAFFIN [Suspect]
  22. ADDIPHOS [Concomitant]
  23. CEFOTAXIME [Concomitant]
  24. ALFENTANIL [Concomitant]
  25. AMISULPRIDE [Concomitant]
  26. SENNA-MINT WAF [Concomitant]

REACTIONS (1)
  - ANAPHYLACTIC REACTION [None]
